FAERS Safety Report 4648185-6 (Version None)
Quarter: 2005Q2

REPORT INFORMATION
  Report Type: 
  Country: None (occurrence: None)
  Receive Date: 20050331
  Receipt Date: 20050112
  Transmission Date: 20051028
  Serious: No
  Sender: FDA-Public Use
  Company Number: 05P-163-0286283-00

PATIENT
  Age: 59 Year
  Sex: Female
  Weight: 113.5 kg

DRUGS (11)
  1. HUMIRA [Suspect]
     Indication: RHEUMATOID ARTHRITIS
     Dosage: 40 MG, 1 IN 2 WK, SUBCUTANEOUS
     Route: 058
     Dates: start: 20040101, end: 20050102
  2. CEFADROXIL [Concomitant]
  3. ATORVASTATIN [Concomitant]
  4. CALCIUM GLUCONATE [Concomitant]
  5. FOLIC ACID [Concomitant]
  6. METHOTREXATE [Concomitant]
  7. DARVOCET [Concomitant]
  8. METFORMIN [Concomitant]
  9. BENICAR [Concomitant]
  10. LEVOTHYROXINE SODIUM [Concomitant]
  11. PARACETAMOL [Concomitant]

REACTIONS (2)
  - NASAL DISCOMFORT [None]
  - UPPER RESPIRATORY TRACT INFECTION [None]
